FAERS Safety Report 23886214 (Version 9)
Quarter: 2025Q1

REPORT INFORMATION
  Report Type: Spontaneous
  Country: US (occurrence: US)
  Receive Date: 20240522
  Receipt Date: 20250125
  Transmission Date: 20250409
  Serious: Yes (Hospitalization, Other)
  Sender: UNITED THERAPEUTICS
  Company Number: US-UNITED THERAPEUTICS-UNT-2024-012915

PATIENT
  Sex: Male
  Weight: 62.585 kg

DRUGS (59)
  1. TYVASO DPI [Suspect]
     Active Substance: TREPROSTINIL
     Indication: Pulmonary arterial hypertension
     Dosage: 64 ?G, QID
     Dates: start: 2024, end: 2024
  2. TYVASO DPI [Suspect]
     Active Substance: TREPROSTINIL
     Dosage: 32 ?G, QID
     Dates: start: 2024
  3. TYVASO DPI [Suspect]
     Active Substance: TREPROSTINIL
  4. TYVASO DPI [Suspect]
     Active Substance: TREPROSTINIL
     Indication: Pulmonary arterial hypertension
  5. TYVASO DPI [Suspect]
     Active Substance: TREPROSTINIL
     Indication: Pulmonary arterial hypertension
  6. OFEV [Suspect]
     Active Substance: NINTEDANIB
     Indication: Idiopathic pulmonary fibrosis
     Dosage: 150 MG, QD
     Dates: start: 20220610
  7. OFEV [Suspect]
     Active Substance: NINTEDANIB
     Dosage: 100 MG, BID (DOSE DECREASED)
     Dates: start: 2024, end: 2024
  8. OFEV [Suspect]
     Active Substance: NINTEDANIB
     Dosage: 150 MG, BID
  9. OFEV [Suspect]
     Active Substance: NINTEDANIB
     Dosage: 100 MG, QD
     Dates: start: 2024
  10. OFEV [Suspect]
     Active Substance: NINTEDANIB
  11. OFEV [Suspect]
     Active Substance: NINTEDANIB
  12. OFEV [Suspect]
     Active Substance: NINTEDANIB
  13. OFEV [Suspect]
     Active Substance: NINTEDANIB
  14. OFEV [Suspect]
     Active Substance: NINTEDANIB
  15. OFEV [Suspect]
     Active Substance: NINTEDANIB
  16. OFEV [Suspect]
     Active Substance: NINTEDANIB
  17. OFEV [Suspect]
     Active Substance: NINTEDANIB
  18. OFEV [Suspect]
     Active Substance: NINTEDANIB
  19. OFEV [Suspect]
     Active Substance: NINTEDANIB
  20. OFEV [Suspect]
     Active Substance: NINTEDANIB
  21. OFEV [Suspect]
     Active Substance: NINTEDANIB
  22. OFEV [Suspect]
     Active Substance: NINTEDANIB
  23. OFEV [Suspect]
     Active Substance: NINTEDANIB
  24. PIRFENIDONE [Suspect]
     Active Substance: PIRFENIDONE
     Indication: Product used for unknown indication
  25. VITAMIN C [Concomitant]
     Active Substance: ASCORBIC ACID
     Indication: Product used for unknown indication
  26. OMEPRAZOLE [Concomitant]
     Active Substance: OMEPRAZOLE
     Indication: Product used for unknown indication
     Dosage: 40 MG, BID
  27. VITAMINS [Concomitant]
     Active Substance: VITAMINS
     Indication: Product used for unknown indication
  28. MIRTAZAPINE [Concomitant]
     Active Substance: MIRTAZAPINE
     Indication: Abnormal loss of weight
     Dosage: 15 MG, QHS
  29. MIRTAZAPINE [Concomitant]
     Active Substance: MIRTAZAPINE
     Indication: Poor quality sleep
  30. BREO ELLIPTA [Concomitant]
     Active Substance: FLUTICASONE FUROATE\VILANTEROL TRIFENATATE
     Indication: Product used for unknown indication
     Dosage: 1 PUFF, QD
  31. ATENOLOL [Concomitant]
     Active Substance: ATENOLOL
     Indication: Product used for unknown indication
     Dosage: 25 MG, QD
  32. ALBUTEROL SULFATE [Concomitant]
     Active Substance: ALBUTEROL SULFATE
     Indication: Emphysema
     Dosage: 2 PUFFS, QID (AS NEEDED)
  33. ALBUTEROL SULFATE [Concomitant]
     Active Substance: ALBUTEROL SULFATE
     Indication: Wheezing
  34. SUCRALFATE [Concomitant]
     Active Substance: SUCRALFATE
     Indication: Dyspepsia
     Dosage: 10 ML, TID
  35. SUCRALFATE [Concomitant]
     Active Substance: SUCRALFATE
     Dosage: 10 ML, BID
  36. LISINOPRIL [Concomitant]
     Active Substance: LISINOPRIL
     Indication: Product used for unknown indication
  37. OXYGEN [Concomitant]
     Active Substance: OXYGEN
     Indication: Respiratory failure
  38. OXYGEN [Concomitant]
     Active Substance: OXYGEN
     Indication: Chronic obstructive pulmonary disease
  39. LIPITOR [Concomitant]
     Active Substance: ATORVASTATIN CALCIUM
     Indication: Product used for unknown indication
     Dosage: 80 MG, QD
  40. ALLEGRA ALLERGY [Concomitant]
     Active Substance: FEXOFENADINE HYDROCHLORIDE
     Indication: Product used for unknown indication
  41. OMEGA-3 FISH OIL +VITAMIN D [Concomitant]
     Indication: Product used for unknown indication
  42. ASPIRIN [Concomitant]
     Active Substance: ASPIRIN
     Indication: Oesophageal ulcer
     Dosage: 81 MG, QD
  43. ASPIRIN [Concomitant]
     Active Substance: ASPIRIN
     Indication: Carotid endarterectomy
  44. ASPIRIN [Concomitant]
     Active Substance: ASPIRIN
     Indication: Coronary artery bypass
  45. LOSARTAN [Concomitant]
     Active Substance: LOSARTAN
     Indication: Cough
     Dosage: 50 MG, QD
  46. LOSARTAN [Concomitant]
     Active Substance: LOSARTAN
     Indication: Hypertension
  47. METAMUCIL [Concomitant]
     Active Substance: PLANTAGO SEED
     Indication: Gastrooesophageal reflux disease
     Dosage: 1.7 GRAM, TID [AS NEEDED]
  48. METAMUCIL [Concomitant]
     Active Substance: PLANTAGO SEED
     Indication: Odynophagia
  49. METAMUCIL [Concomitant]
     Active Substance: PLANTAGO SEED
     Indication: Constipation
  50. PENLAC NAIL [Concomitant]
     Indication: Paronychia
     Dosage: UNK, QD (1 APPLICATION)
  51. TUMS ULTRA [Concomitant]
     Active Substance: CALCIUM CARBONATE
     Indication: Cough
     Dosage: 3000 MG, BID [AS NEEDED]
  52. TUMS ULTRA [Concomitant]
     Active Substance: CALCIUM CARBONATE
     Indication: Gastrooesophageal reflux disease
  53. TUMS ULTRA [Concomitant]
     Active Substance: CALCIUM CARBONATE
     Indication: Dyspepsia
  54. UNSPECIFIED INGREDIENT [Concomitant]
     Active Substance: UNSPECIFIED INGREDIENT
     Indication: Product used for unknown indication
     Dates: start: 20240329, end: 20240329
  55. UNSPECIFIED INGREDIENT [Concomitant]
     Active Substance: UNSPECIFIED INGREDIENT
     Dates: start: 20240402, end: 20240402
  56. TESSALON [Concomitant]
     Active Substance: BENZONATATE
     Indication: Cough
     Dosage: 100 MG, TID (AS NECESSARY, EVERY 8 HOURS)
  57. CYCLOBENZAPRINE [Concomitant]
     Active Substance: CYCLOBENZAPRINE
     Indication: Muscle spasms
     Dosage: 5 MG, TID (AS NEEDED)
  58. TRAZODONE [Concomitant]
     Active Substance: TRAZODONE HYDROCHLORIDE
     Indication: Poor quality sleep
     Dosage: 50 MG, QHS
  59. INFLUENZA VIRUS VACCINE [Concomitant]
     Active Substance: INFLUENZA VIRUS VACCINE
     Indication: Immunisation

REACTIONS (23)
  - Pneumonia [Unknown]
  - Dyspnoea [Not Recovered/Not Resolved]
  - Abdominal discomfort [Unknown]
  - Pain [Unknown]
  - Vomiting [Unknown]
  - Dyspnoea exertional [Unknown]
  - Cough [Not Recovered/Not Resolved]
  - Nausea [Recovered/Resolved]
  - Decreased appetite [Recovered/Resolved]
  - Productive cough [Not Recovered/Not Resolved]
  - Exercise tolerance decreased [Not Recovered/Not Resolved]
  - Oxygen saturation decreased [Unknown]
  - Rales [Unknown]
  - Transaminases increased [Unknown]
  - Flatulence [Recovered/Resolved]
  - Headache [Recovered/Resolved]
  - Abdominal pain upper [Recovered/Resolved]
  - Dizziness [Recovered/Resolved]
  - Sputum discoloured [Unknown]
  - Loss of personal independence in daily activities [Unknown]
  - Condition aggravated [Not Recovered/Not Resolved]
  - Therapy non-responder [Unknown]
  - Product dose omission issue [Recovered/Resolved]

NARRATIVE: CASE EVENT DATE: 20240101
